FAERS Safety Report 17445167 (Version 2)
Quarter: 2020Q1

REPORT INFORMATION
  Report Type: Spontaneous
  Country: US (occurrence: US)
  Receive Date: 20200221
  Receipt Date: 20200313
  Transmission Date: 20200409
  Serious: No
  Sender: FDA-Public Use
  Company Number: US-PFIZER INC-2020076651

PATIENT
  Age: 82 Year
  Sex: Female
  Weight: 60.32 kg

DRUGS (1)
  1. PREMARIN [Suspect]
     Active Substance: ESTROGENS, CONJUGATED
     Indication: PREMATURE MENOPAUSE
     Dosage: 1.25 MG, 1X/DAY
     Dates: start: 1971

REACTIONS (9)
  - Malaise [Unknown]
  - Asthenia [Unknown]
  - Mood swings [Unknown]
  - Breast atrophy [Unknown]
  - Insomnia [Unknown]
  - Alopecia [Unknown]
  - Vulvovaginal dryness [Unknown]
  - Off label use [Unknown]
  - Product use in unapproved indication [Unknown]

NARRATIVE: CASE EVENT DATE: 1971
